FAERS Safety Report 15538917 (Version 1)
Quarter: 2018Q4

REPORT INFORMATION
  Report Type: Spontaneous
  Country: ZA (occurrence: ZA)
  Receive Date: 20181022
  Receipt Date: 20181022
  Transmission Date: 20190205
  Serious: Yes (Other)
  Sender: FDA-Public Use
  Company Number: ZA-PFIZER INC-2018424979

PATIENT
  Sex: Female
  Weight: 60 kg

DRUGS (3)
  1. CHLOROQUINE. [Suspect]
     Active Substance: CHLOROQUINE
     Dosage: 200 MG, DAILY
     Dates: start: 201710, end: 201801
  2. SALAZOPYRIN [Suspect]
     Active Substance: SULFASALAZINE
     Dosage: 1 G, DAILY
     Dates: start: 201710, end: 201801
  3. METHOTREXATE. [Concomitant]
     Active Substance: METHOTREXATE
     Dosage: 25 MG, WEEKLY
     Route: 048
     Dates: start: 201801, end: 201804

REACTIONS (5)
  - Synovitis [Unknown]
  - Psoriatic arthropathy [Unknown]
  - Alanine aminotransferase increased [Unknown]
  - Aspartate aminotransferase increased [Unknown]
  - Drug intolerance [Unknown]
